FAERS Safety Report 21307673 (Version 1)
Quarter: 2022Q3

REPORT INFORMATION
  Report Type: Spontaneous
  Country: US (occurrence: US)
  Receive Date: 20220908
  Receipt Date: 20220908
  Transmission Date: 20221027
  Serious: Yes (Hospitalization, Other)
  Sender: FDA-Public Use
  Company Number: US-TORRENT-00012004

PATIENT
  Age: 15 Year
  Sex: Female

DRUGS (2)
  1. TRAZODONE [Suspect]
     Active Substance: TRAZODONE HYDROCHLORIDE
     Indication: Mania
     Dosage: 25 MG AT NIGHT
     Route: 065
  2. OLANZAPINE [Suspect]
     Active Substance: OLANZAPINE
     Indication: Tic
     Dosage: 2.5 MG TWICE DAILY
     Route: 065

REACTIONS (4)
  - Condition aggravated [Unknown]
  - Tic [Unknown]
  - Drug ineffective [Unknown]
  - Serotonin syndrome [Unknown]
